FAERS Safety Report 7391988-8 (Version None)
Quarter: 2011Q2

REPORT INFORMATION
  Report Type: 
  Country: None (occurrence: None)
  Receive Date: 20110404
  Receipt Date: 20110329
  Transmission Date: 20111010
  Serious: Yes (Death, Hospitalization, Other)
  Sender: FDA-Public Use
  Company Number: PHHY2011US19871

PATIENT
  Sex: Male
  Weight: 102 kg

DRUGS (30)
  1. MIRALAX [Concomitant]
     Dosage: 17 GMS IN 80 G H2O QD
     Dates: start: 20110305, end: 20110309
  2. SUTENT [Suspect]
     Dosage: 37.5 MG ON ALTERNATE DAYS
  3. AFRIN [Concomitant]
     Dosage: 1-2 SPRAYS
     Dates: end: 20110306
  4. SODIUM PHOSPHATE [Concomitant]
     Dosage: UNK
     Route: 042
     Dates: start: 20110306, end: 20110309
  5. PIPERACILLIN [Concomitant]
     Dosage: 4.5 GMS IV
     Dates: start: 20110306
  6. OMEPRAZOLE [Concomitant]
     Dosage: 40 MG, QD
     Route: 048
  7. LASIX [Concomitant]
     Dosage: 40 MG AND 20 MG ALTERNATE DAYS
     Dates: start: 20110309
  8. ZOFRON [Concomitant]
     Dosage: 4 MG, UNK
     Route: 042
     Dates: start: 20110309
  9. KCE REPLACEMENT [Concomitant]
     Dosage: UNK
     Route: 042
     Dates: start: 20110306, end: 20110309
  10. NS FLUSGHES [Concomitant]
     Dosage: UNK
     Dates: start: 20110306, end: 20110309
  11. LIDOCAINE [Concomitant]
     Dosage: UNK
     Route: 042
     Dates: start: 20110309
  12. SERTRALINE HYDROCHLORIDE [Concomitant]
     Dosage: 150 MG, UNK
     Route: 048
  13. GLEEVEC [Suspect]
     Indication: GASTROINTESTINAL STROMAL TUMOUR
     Dosage: 400 MG DAILY
     Route: 048
     Dates: start: 20070101
  14. PROTONIX [Concomitant]
     Dosage: 40 MG, BID
     Route: 048
     Dates: end: 20110308
  15. NEXIUM [Concomitant]
     Indication: DYSPNOEA
  16. SUTENT [Suspect]
     Indication: GASTROINTESTINAL STROMAL TUMOUR
     Dosage: 37.3 MG PER DAY
     Dates: start: 20100417
  17. SUTENT [Suspect]
     Dosage: 50 MG PER DAY
     Dates: start: 20100610
  18. VITAMIN K TAB [Concomitant]
     Dosage: 10 MG, UNK
     Route: 042
     Dates: end: 20110306
  19. SIMETHICONE [Concomitant]
     Dosage: 80 MG, UNK
     Dates: start: 20110305, end: 20110309
  20. MORPHINE SULFATE [Concomitant]
     Dosage: 2-4 MG
     Route: 042
     Dates: start: 20110309
  21. VANCOMYCIN [Concomitant]
     Dosage: 1250 MG-1500 MG
     Route: 042
     Dates: start: 20110306, end: 20110309
  22. AMBIEN [Concomitant]
     Indication: INSOMNIA
     Dosage: 10 MG EACH DAY AT BED TIME
     Route: 048
  23. GLEEVEC [Suspect]
     Dosage: 400 MG, BID
     Dates: end: 20100601
  24. SUTENT [Suspect]
     Dosage: 50 MG ON ALTERNATE DAYS
  25. AMBIEN [Concomitant]
     Dosage: 10 MG, UNK
     Route: 048
     Dates: end: 20110308
  26. AMICAR [Concomitant]
     Dosage: UNK
     Route: 048
     Dates: start: 20110305, end: 20110309
  27. GLEEVEC [Suspect]
     Dosage: DICONTINUED
     Dates: end: 20110305
  28. ZOLOFT [Concomitant]
     Dosage: 150 MG, UNK
     Route: 048
     Dates: end: 20110308
  29. NARCAN [Concomitant]
     Dosage: UNK
     Dates: end: 20110309
  30. DILAUDID [Concomitant]
     Dosage: 0.2-0.4 MG
     Route: 042
     Dates: start: 20110308, end: 20110309

REACTIONS (14)
  - NAUSEA [None]
  - ANAEMIA [None]
  - BLOOD URINE PRESENT [None]
  - VISION BLURRED [None]
  - DISSEMINATED INTRAVASCULAR COAGULATION [None]
  - HAEMOPTYSIS [None]
  - ABDOMINAL PAIN [None]
  - EPISTAXIS [None]
  - BLOOD FIBRINOGEN DECREASED [None]
  - HEPATIC LESION [None]
  - LETHARGY [None]
  - ABDOMINAL DISTENSION [None]
  - TACHYCARDIA [None]
  - GENE MUTATION IDENTIFICATION TEST POSITIVE [None]
